FAERS Safety Report 9368984 (Version 1)
Quarter: 2013Q2

REPORT INFORMATION
  Report Type: Spontaneous
  Country: TR (occurrence: None)
  Receive Date: 20130621
  Receipt Date: 20130621
  Transmission Date: 20140414
  Serious: Yes (Death, Other)
  Sender: FDA-Public Use
  Company Number: SYM-2013-04768

PATIENT
  Age: 48 Year
  Sex: Male

DRUGS (3)
  1. FLUOROURACIL [Suspect]
     Indication: GASTRIC CANCER
     Route: 040
  2. FOLINIC ACID [Suspect]
     Indication: GASTRIC CANCER
  3. IRINOTECAN [Suspect]
     Indication: GASTRIC CANCER
     Route: 042

REACTIONS (14)
  - Ascites [None]
  - Peritonitis [None]
  - Metastasis [None]
  - Left ventricular dysfunction [None]
  - Ventricular tachycardia [None]
  - Ventricular fibrillation [None]
  - Gastric cancer [None]
  - Malignant neoplasm progression [None]
  - Tachycardia [None]
  - Dyspnoea [None]
  - Infusion related reaction [None]
  - Breath sounds abnormal [None]
  - Electrocardiogram T wave inversion [None]
  - Heart sounds abnormal [None]
